FAERS Safety Report 19408353 (Version 2)
Quarter: 2021Q2

REPORT INFORMATION
  Report Type: Other
  Country: JP (occurrence: JP)
  Receive Date: 20210612
  Receipt Date: 20210617
  Transmission Date: 20210717
  Serious: Yes (Hospitalization)
  Sender: FDA-Public Use
  Company Number: JP-ROCHE-2847753

PATIENT
  Age: 70 Year
  Sex: Male
  Weight: 47.6 kg

DRUGS (4)
  1. BEVACIZUMAB. [Suspect]
     Active Substance: BEVACIZUMAB
     Indication: LUNG ADENOCARCINOMA
     Route: 041
     Dates: start: 20210427
  2. ATEZOLIZUMAB. [Suspect]
     Active Substance: ATEZOLIZUMAB
     Indication: LUNG ADENOCARCINOMA
     Route: 041
     Dates: start: 20210427, end: 20210427
  3. CARBOPLATIN. [Concomitant]
     Active Substance: CARBOPLATIN
     Indication: LUNG ADENOCARCINOMA
     Dosage: 407 MILLIGRAM, SINGLE
     Route: 041
     Dates: start: 20210427
  4. PACLITAXEL. [Concomitant]
     Active Substance: PACLITAXEL
     Indication: LUNG ADENOCARCINOMA
     Dosage: 237 MILLIGRAM, SINGLE
     Route: 041
     Dates: start: 20210427, end: 20210427

REACTIONS (1)
  - Bronchiolitis [Recovering/Resolving]

NARRATIVE: CASE EVENT DATE: 20210506
